FAERS Safety Report 15674948 (Version 1)
Quarter: 2018Q4

REPORT INFORMATION
  Report Type: Spontaneous
  Country: GB (occurrence: GB)
  Receive Date: 20181130
  Receipt Date: 20181130
  Transmission Date: 20190205
  Serious: Yes (Hospitalization)
  Sender: FDA-Public Use
  Company Number: GB-ACCORD-094280

PATIENT
  Age: 58 Year
  Sex: Female
  Weight: 64 kg

DRUGS (7)
  1. FOLIC ACID. [Concomitant]
     Active Substance: FOLIC ACID
  2. SERTRALINE [Suspect]
     Active Substance: SERTRALINE HYDROCHLORIDE
     Indication: DEPRESSION
     Route: 048
  3. ZOPICLONE [Concomitant]
     Active Substance: ZOPICLONE
  4. METHOTREXATE. [Concomitant]
     Active Substance: METHOTREXATE
     Dosage: BEEN ON FOR }10 YEARS
  5. BETAHISTINE [Concomitant]
     Active Substance: BETAHISTINE
  6. RAMIPRIL. [Concomitant]
     Active Substance: RAMIPRIL
  7. SALAZOPYRIN [Concomitant]
     Active Substance: SULFASALAZINE
     Dosage: BEEN ON FOR }10 YEARS

REACTIONS (1)
  - Gastritis [Recovering/Resolving]
